FAERS Safety Report 16074172 (Version 1)
Quarter: 2019Q1

REPORT INFORMATION
  Report Type: Spontaneous
  Country: GB (occurrence: GB)
  Receive Date: 20190314
  Receipt Date: 20190314
  Transmission Date: 20190418
  Serious: Yes (Other)
  Sender: FDA-Public Use
  Company Number: GB-BAUSCH-BL-2019-007121

PATIENT
  Sex: Female

DRUGS (2)
  1. MINIMS TROPICAMIDE 1 % W/V EYE DROPS, SOLUTION [Suspect]
     Active Substance: TROPICAMIDE
     Indication: PRODUCT USED FOR UNKNOWN INDICATION
     Route: 065
  2. MINIMS OXYBUPROCAINE 0.4% W/V EYE DROPS, SOLUTION [Suspect]
     Active Substance: BENOXINATE HYDROCHLORIDE
     Indication: PRODUCT USED FOR UNKNOWN INDICATION
     Route: 061

REACTIONS (5)
  - Anaphylactic reaction [Unknown]
  - Back pain [Unknown]
  - Pallor [Unknown]
  - Cough [Unknown]
  - Abdominal pain [Unknown]

NARRATIVE: CASE EVENT DATE: 20190228
